FAERS Safety Report 7489195-3 (Version None)
Quarter: 2011Q2

REPORT INFORMATION
  Report Type: 
  Country: None (occurrence: None)
  Receive Date: 20110518
  Receipt Date: 20110504
  Transmission Date: 20111010
  Serious: No
  Sender: FDA-Public Use
  Company Number: US-B.I. PHARMACEUTICALS,INC./RIDGEFIELD-2011-BP-09315BP

PATIENT
  Sex: Male

DRUGS (7)
  1. FUROSEMIDE [Concomitant]
  2. AMLODIPINE [Concomitant]
  3. CLONIDINE [Concomitant]
  4. PRADAXA [Suspect]
     Indication: THROMBOSIS
  5. METOPROLOL TARTRATE [Concomitant]
  6. KLOR-CON [Concomitant]
  7. ENALAPRIL MALEATE [Concomitant]

REACTIONS (1)
  - DRY MOUTH [None]
